FAERS Safety Report 15838635 (Version 1)
Quarter: 2019Q1

REPORT INFORMATION
  Report Type: Spontaneous
  Country: US (occurrence: US)
  Receive Date: 20190117
  Receipt Date: 20190117
  Transmission Date: 20190417
  Serious: No
  Sender: FDA-Public Use
  Company Number: US-BRISTOL-MYERS SQUIBB COMPANY-BMS-2019-002613

PATIENT
  Sex: Female
  Weight: 101.59 kg

DRUGS (1)
  1. ELIQUIS [Suspect]
     Active Substance: APIXABAN
     Indication: CEREBROVASCULAR ACCIDENT PROPHYLAXIS
     Dosage: 5 MG, BID
     Route: 048
     Dates: start: 20181222

REACTIONS (7)
  - Skin burning sensation [Unknown]
  - Fall [Unknown]
  - Circumstance or information capable of leading to medication error [Unknown]
  - Chest pain [Recovered/Resolved]
  - Epistaxis [Unknown]
  - Feeling abnormal [Unknown]
  - Dry skin [Unknown]
